FAERS Safety Report 4991518-1 (Version None)
Quarter: 2006Q2

REPORT INFORMATION
  Report Type: 
  Country: None (occurrence: None)
  Receive Date: 20060502
  Receipt Date: 20060419
  Transmission Date: 20061013
  Serious: Yes (Other)
  Sender: FDA-Public Use
  Company Number: 007228

PATIENT
  Age: 24 Year
  Sex: Female

DRUGS (2)
  1. CLARAVIS [Suspect]
     Dosage: ORAL
     Route: 048
     Dates: start: 20051221, end: 20060417
  2. ORAL CONTRACEPTIVE NOS (ORAL CONTRACEPTIVE NOS) [Suspect]
     Indication: ORAL CONTRACEPTION
     Dosage: ORAL
     Route: 048

REACTIONS (3)
  - ABORTION INDUCED [None]
  - DRUG THERAPY CHANGED [None]
  - PREGNANCY ON ORAL CONTRACEPTIVE [None]
